FAERS Safety Report 6661818-8 (Version None)
Quarter: 2010Q1

REPORT INFORMATION
  Report Type: 
  Country: None (occurrence: None)
  Receive Date: 20100331
  Receipt Date: 20090909
  Transmission Date: 20100710
  Serious: Yes (Hospitalization)
  Sender: FDA-Public Use
  Company Number: US-BRISTOL-MYERS SQUIBB COMPANY-14704175

PATIENT
  Age: 76 Year
  Sex: Male

DRUGS (4)
  1. ERBITUX [Suspect]
     Indication: METASTASES TO LARGE INTESTINE
     Route: 042
     Dates: start: 20090608
  2. IRINOTECAN HCL [Suspect]
     Indication: METASTASES TO LARGE INTESTINE
     Route: 042
     Dates: start: 20090608
  3. FLUOROURACIL [Suspect]
     Indication: METASTASES TO LARGE INTESTINE
     Route: 042
     Dates: start: 20090608
  4. FOLIC ACID [Suspect]
     Indication: METASTASES TO LARGE INTESTINE
     Route: 042
     Dates: start: 20090608

REACTIONS (1)
  - HYPERSENSITIVITY [None]
